FAERS Safety Report 15838243 (Version 2)
Quarter: 2019Q1

REPORT INFORMATION
  Report Type: Spontaneous
  Country: CO (occurrence: CO)
  Receive Date: 20190117
  Receipt Date: 20190123
  Transmission Date: 20190417
  Serious: Yes (Other)
  Sender: FDA-Public Use
  Company Number: PHHY2019CO008237

PATIENT
  Age: 38 Year
  Sex: Male

DRUGS (5)
  1. EVEROLIMUS. [Suspect]
     Active Substance: EVEROLIMUS
     Indication: NEUROENDOCRINE CARCINOMA METASTATIC
     Dosage: 10 MG, QD
     Route: 065
  2. LANREOTIDE [Suspect]
     Active Substance: LANREOTIDE
     Dosage: 120 MG, EVERY 14 DAYS
     Route: 065
  3. LANREOTIDE [Suspect]
     Active Substance: LANREOTIDE
     Dosage: 120 MG, EVERY 21 DAYS
     Route: 065
  4. LANREOTIDE [Suspect]
     Active Substance: LANREOTIDE
     Indication: CARCINOID SYNDROME
     Dosage: 90 MG, EVERY 30 DAYS
     Route: 065
  5. LANREOTIDE [Suspect]
     Active Substance: LANREOTIDE
     Dosage: 120 MG, EVERY 30 DAYS
     Route: 065

REACTIONS (5)
  - Malnutrition [Recovered/Resolved]
  - Cardiac valve disease [Unknown]
  - Asthenia [Unknown]
  - Diarrhoea [Recovering/Resolving]
  - Palpitations [Unknown]
